FAERS Safety Report 4682746-3 (Version None)
Quarter: 2005Q2

REPORT INFORMATION
  Report Type: 
  Country: None (occurrence: None)
  Receive Date: 20050602
  Receipt Date: 20050415
  Transmission Date: 20051028
  Serious: No
  Sender: FDA-Public Use
  Company Number: USA050495846

PATIENT
  Sex: Female

DRUGS (4)
  1. CYMBALTA [Suspect]
     Indication: POST HERPETIC NEURALGIA
     Dosage: 30 MG DAY
     Dates: start: 20050401
  2. TENORMIN (ATENOLOL EG) [Concomitant]
  3. ACETAMINOPHEN W/HYDROCODONE [Concomitant]
  4. OXYCONTIN [Concomitant]

REACTIONS (4)
  - ABNORMAL CHEST SOUND [None]
  - COUGH [None]
  - FATIGUE [None]
  - RASH [None]
